FAERS Safety Report 5005487-1 (Version None)
Quarter: 2006Q2

REPORT INFORMATION
  Report Type: 
  Country: None (occurrence: None)
  Receive Date: 20060518
  Receipt Date: 20050414
  Transmission Date: 20061013
  Serious: Yes (Disabling)
  Sender: FDA-Public Use
  Company Number: US-MERCK-0504USA02765

PATIENT
  Sex: Female
  Weight: 45 kg

DRUGS (7)
  1. VIOXX [Suspect]
     Indication: INFLAMMATION
     Route: 048
     Dates: start: 19990101, end: 20020101
  2. VIOXX [Suspect]
     Route: 048
     Dates: start: 19990101, end: 20020101
  3. CELEBREX [Concomitant]
     Route: 065
  4. COLCHICINE [Concomitant]
     Route: 065
  5. PROZAC [Concomitant]
     Route: 065
  6. ADVIL [Concomitant]
     Route: 065
  7. CORTICOSTEROIDS (UNSPECIFIED) [Concomitant]
     Route: 065

REACTIONS (4)
  - BEHCET'S SYNDROME [None]
  - BIPOLAR DISORDER [None]
  - OVERDOSE [None]
  - RENAL DISORDER [None]
